FAERS Safety Report 12352881 (Version 1)
Quarter: 2016Q2

REPORT INFORMATION
  Report Type: Report from Study
  Country: US (occurrence: US)
  Receive Date: 20160510
  Receipt Date: 20160510
  Transmission Date: 20160815
  Serious: Yes (Hospitalization, Disabling)
  Sender: FDA-Public Use
  Company Number: US-ACTELION-A-US2016-135627

PATIENT
  Age: 82 Year
  Sex: Female

DRUGS (2)
  1. MACITENTAN [Suspect]
     Active Substance: MACITENTAN
     Indication: PULMONARY ARTERIAL HYPERTENSION
     Dosage: 10 MG, QD
     Route: 048
     Dates: start: 2015
  2. FUROSEMIDE. [Concomitant]
     Active Substance: FUROSEMIDE

REACTIONS (10)
  - Amnesia [Not Recovered/Not Resolved]
  - Balance disorder [Unknown]
  - Hypotension [Recovered/Resolved]
  - Condition aggravated [Not Recovered/Not Resolved]
  - Head injury [Recovered/Resolved]
  - Back injury [Recovered/Resolved]
  - Fall [Recovered/Resolved]
  - Dyspnoea exertional [Not Recovered/Not Resolved]
  - Loss of consciousness [Recovered/Resolved]
  - Lumbar vertebral fracture [Not Recovered/Not Resolved]

NARRATIVE: CASE EVENT DATE: 201602
